FAERS Safety Report 5731924-0 (Version None)
Quarter: 2008Q2

REPORT INFORMATION
  Report Type: 
  Country: None (occurrence: None)
  Receive Date: 20080508
  Receipt Date: 20080501
  Transmission Date: 20081010
  Serious: Yes (Life-Threatening, Hospitalization)
  Sender: FDA-Public Use
  Company Number: GB-MERCK-0805GBR00016

PATIENT
  Age: 69 Year
  Sex: Male

DRUGS (4)
  1. ZETIA [Suspect]
     Route: 048
  2. ATORVASTATIN [Suspect]
     Route: 048
  3. ANTIMICROBIAL (UNSPECIFIED) [Suspect]
     Route: 065
  4. FUSIDATE SODIUM [Suspect]
     Route: 065

REACTIONS (3)
  - DEVICE RELATED INFECTION [None]
  - PNEUMONIA [None]
  - RHABDOMYOLYSIS [None]
